FAERS Safety Report 4771996-3 (Version None)
Quarter: 2005Q3

REPORT INFORMATION
  Report Type: 
  Country: None (occurrence: None)
  Receive Date: 20050916
  Receipt Date: 20050907
  Transmission Date: 20060218
  Serious: Yes (Life-Threatening, Hospitalization, Other)
  Sender: FDA-Public Use
  Company Number: GB-MERCK-0509USA01962

PATIENT
  Age: 60 Year
  Sex: Male

DRUGS (3)
  1. PRINIVIL [Suspect]
     Indication: HYPERTENSION
     Route: 048
  2. ASPIRIN [Concomitant]
     Route: 065
  3. RANITIDINE [Concomitant]
     Route: 065

REACTIONS (16)
  - ACUTE MYOCARDIAL INFARCTION [None]
  - AGITATION [None]
  - ANAPHYLACTIC REACTION [None]
  - ANGIONEUROTIC OEDEMA [None]
  - CARDIO-RESPIRATORY ARREST [None]
  - CYANOSIS [None]
  - HEART RATE INCREASED [None]
  - LARYNGEAL OEDEMA [None]
  - OXYGEN SATURATION DECREASED [None]
  - PNEUMOPERICARDIUM [None]
  - PNEUMOTHORAX [None]
  - POST PROCEDURAL COMPLICATION [None]
  - POST PROCEDURAL HAEMORRHAGE [None]
  - RESPIRATORY DISTRESS [None]
  - STRIDOR [None]
  - SUBCUTANEOUS EMPHYSEMA [None]
